FAERS Safety Report 4930498-1 (Version None)
Quarter: 2006Q1

REPORT INFORMATION
  Report Type: 
  Country: None (occurrence: None)
  Receive Date: 20060118
  Receipt Date: 20050818
  Transmission Date: 20060701
  Serious: No
  Sender: FDA-Public Use
  Company Number: 2005001642

PATIENT
  Age: 74 Year
  Sex: Male
  Weight: 38.5557 kg

DRUGS (6)
  1. TARCEVA [Suspect]
     Indication: NON-SMALL CELL LUNG CANCER METASTATIC
     Dosage: 150 MG (QD), ORAL; 150 MG (QD), ORAL; 100 MG (QD), ORAL
     Route: 048
     Dates: start: 20050101
  2. TARCEVA [Suspect]
     Indication: NON-SMALL CELL LUNG CANCER METASTATIC
     Dosage: 150 MG (QD), ORAL; 150 MG (QD), ORAL; 100 MG (QD), ORAL
     Route: 048
     Dates: start: 20050601
  3. TARCEVA [Suspect]
     Indication: NON-SMALL CELL LUNG CANCER METASTATIC
     Dosage: 150 MG (QD), ORAL; 150 MG (QD), ORAL; 100 MG (QD), ORAL
     Route: 048
     Dates: start: 20050801
  4. VICODIN [Concomitant]
  5. ADVIL [Concomitant]
  6. PAMIDRONATE DISODIUM [Concomitant]

REACTIONS (6)
  - ANAEMIA [None]
  - BACK PAIN [None]
  - CONTUSION [None]
  - DIARRHOEA [None]
  - LUNG INFILTRATION [None]
  - STOMATITIS [None]
